FAERS Safety Report 24133989 (Version 1)
Quarter: 2024Q3

REPORT INFORMATION
  Report Type: Spontaneous
  Country: MX (occurrence: MX)
  Receive Date: 20240724
  Receipt Date: 20240724
  Transmission Date: 20241017
  Serious: Yes (Hospitalization)
  Sender: EISAI
  Company Number: MX-Eisai-EC-2024-170622

PATIENT
  Age: 60 Year
  Sex: Male

DRUGS (1)
  1. LENVATINIB MESYLATE [Suspect]
     Active Substance: LENVATINIB MESYLATE
     Indication: Hepatocellular carcinoma
     Route: 048

REACTIONS (1)
  - Encephalopathy [Unknown]
